FAERS Safety Report 7864341-8 (Version None)
Quarter: 2011Q4

REPORT INFORMATION
  Report Type: 
  Country: None (occurrence: None)
  Receive Date: 20111028
  Receipt Date: 20111019
  Transmission Date: 20120403
  Serious: Yes (Death, Hospitalization)
  Sender: FDA-Public Use
  Company Number: BR-PFIZER INC-BR-WYE-H14093510

PATIENT
  Age: 68 Year
  Sex: Female
  Weight: 76 kg

DRUGS (2)
  1. BEVACIZUMAB [Suspect]
     Indication: RENAL CELL CARCINOMA
     Dosage: 10.0 MG/KG, 1X/2 WK
     Route: 042
     Dates: start: 20091223, end: 20100310
  2. TEMSIROLIMUS [Suspect]
     Indication: RENAL CELL CARCINOMA
     Dosage: 25.0 MG,1X/WK
     Route: 042
     Dates: start: 20091223, end: 20100310

REACTIONS (1)
  - PNEUMONIA [None]
